FAERS Safety Report 6764287-2 (Version None)
Quarter: 2010Q2

REPORT INFORMATION
  Report Type: 
  Country: None (occurrence: None)
  Receive Date: 20100610
  Receipt Date: 20100601
  Transmission Date: 20101027
  Serious: Yes (Hospitalization)
  Sender: FDA-Public Use
  Company Number: JP-MERCK-1006USA00104

PATIENT
  Age: 77 Year
  Sex: Male
  Weight: 57 kg

DRUGS (12)
  1. JANUVIA [Suspect]
     Indication: DIABETES MELLITUS
     Route: 048
     Dates: start: 20100412, end: 20100524
  2. HACHIMI-JIO-GAN [Suspect]
     Indication: PERIPHERAL COLDNESS
     Route: 048
     Dates: start: 20100504, end: 20100524
  3. LAC-B [Concomitant]
     Indication: CONSTIPATION
     Route: 048
     Dates: start: 20100405, end: 20100524
  4. AMLODIPINE BESYLATE [Concomitant]
     Indication: HYPERTENSION
     Route: 048
     Dates: start: 20100405, end: 20100524
  5. PASETOCIN [Concomitant]
     Route: 048
     Dates: start: 20100521, end: 20100524
  6. AZUNOL (SODIUM GUALENATE) [Concomitant]
     Route: 048
     Dates: start: 20100521, end: 20100521
  7. JUVELA N [Concomitant]
     Route: 048
     Dates: start: 20100521
  8. PREDORIC [Concomitant]
     Indication: HYPERTENSION
     Route: 048
     Dates: start: 20100405, end: 20100524
  9. LIPITOR [Concomitant]
     Indication: HYPERLIPIDAEMIA
     Route: 048
     Dates: start: 20100405, end: 20100524
  10. AMARYL [Concomitant]
     Indication: DIABETES MELLITUS
     Route: 048
     Dates: start: 20100405, end: 20100524
  11. LOXONIN [Concomitant]
     Route: 048
     Dates: start: 20100521, end: 20100524
  12. ACTOS [Concomitant]
     Indication: DIABETES MELLITUS
     Route: 048
     Dates: start: 20100405, end: 20100524

REACTIONS (3)
  - INFECTION [None]
  - INFLUENZA B VIRUS TEST POSITIVE [None]
  - PNEUMONIA [None]
